FAERS Safety Report 6372210-8 (Version None)
Quarter: 2009Q3

REPORT INFORMATION
  Report Type: 
  Country: None (occurrence: None)
  Receive Date: 20090924
  Receipt Date: 20090914
  Transmission Date: 20100115
  Serious: Yes (Hospitalization)
  Sender: FDA-Public Use
  Company Number: FR-BIOGENIDEC-2009BI022954

PATIENT
  Age: 23 Year
  Sex: Female
  Weight: 57 kg

DRUGS (9)
  1. TYSABRI [Suspect]
     Indication: MULTIPLE SCLEROSIS
     Route: 042
     Dates: start: 20081201, end: 20090603
  2. TYSABRI [Suspect]
     Route: 042
     Dates: start: 20090729
  3. NEURONTIN [Concomitant]
     Indication: EPILEPSY
     Route: 048
     Dates: start: 20090401
  4. NEXIUM [Concomitant]
     Indication: URINARY TRACT DISORDER
     Route: 048
  5. XATRAL LP [Concomitant]
     Indication: URINARY TRACT DISORDER
     Route: 048
     Dates: start: 20080801
  6. CERIS [Concomitant]
     Indication: URINARY TRACT DISORDER
     Route: 048
     Dates: start: 20080501
  7. FORLAX [Concomitant]
     Indication: CONSTIPATION
     Route: 048
  8. CYMBALTA [Concomitant]
     Indication: ANXIETY
     Route: 048
     Dates: start: 20081201
  9. LIORESAL [Concomitant]
     Indication: MUSCLE RELAXANT THERAPY
     Route: 048
     Dates: start: 20090701

REACTIONS (3)
  - ABDOMINAL PAIN UPPER [None]
  - PNEUMONIA CHLAMYDIAL [None]
  - SPLENIC INFARCTION [None]
